FAERS Safety Report 4590088-X (Version None)
Quarter: 2005Q1

REPORT INFORMATION
  Report Type: 
  Country: None (occurrence: None)
  Receive Date: 20050217
  Receipt Date: 20050120
  Transmission Date: 20050727
  Serious: Yes (Other)
  Sender: FDA-Public Use
  Company Number: 200510252GDS

PATIENT
  Age: 12 Year
  Sex: Female

DRUGS (6)
  1. CIPRO [Suspect]
     Indication: SUICIDE ATTEMPT
  2. CARBAMAZEPINE [Concomitant]
  3. NIMESULIDE [Concomitant]
  4. DICLOFENAC [Concomitant]
  5. CIMETIDINE [Concomitant]
  6. GINGKO BILOBA [Concomitant]

REACTIONS (3)
  - DECREASED ACTIVITY [None]
  - INTENTIONAL MISUSE [None]
  - SUICIDE ATTEMPT [None]
